FAERS Safety Report 9702068 (Version 1)
Quarter: 2013Q4

REPORT INFORMATION
  Report Type: Spontaneous
  Country: US (occurrence: None)
  Receive Date: 20131120
  Receipt Date: 20131120
  Transmission Date: 20140711
  Serious: Yes (Other)
  Sender: FDA-Public Use
  Company Number: None

PATIENT
  Age: 70 Year
  Sex: Female
  Weight: 113.4 kg

DRUGS (13)
  1. CLOPIDOGREL [Suspect]
     Indication: CEREBROVASCULAR ACCIDENT
     Route: 048
     Dates: start: 20130826, end: 20131113
  2. CLOPIDOGREL [Suspect]
     Indication: PROPHYLAXIS
     Route: 048
     Dates: start: 20130826, end: 20131113
  3. CLOPIDOGREL [Suspect]
     Indication: CEREBROVASCULAR ACCIDENT
     Route: 048
  4. CLOPIDOGREL [Suspect]
     Indication: PROPHYLAXIS
     Route: 048
  5. FENOFIBRATE [Concomitant]
  6. FUROSEMIDE [Concomitant]
  7. CYCLOBENZAPRINE [Concomitant]
  8. TRIPLE FLEX [Concomitant]
  9. POTASSIUM GLUCONATE [Concomitant]
  10. ASPIRIN [Concomitant]
  11. ZINC [Concomitant]
  12. CENTRUM SILVER [Concomitant]
  13. VITAMIN D3 [Concomitant]

REACTIONS (2)
  - Muscle spasms [None]
  - Muscle spasms [None]
